FAERS Safety Report 14299661 (Version 4)
Quarter: 2018Q4

REPORT INFORMATION
  Report Type: Spontaneous
  Country: CA (occurrence: CA)
  Receive Date: 20171219
  Receipt Date: 20181228
  Transmission Date: 20190204
  Serious: Yes (Disabling)
  Sender: FDA-Public Use
  Company Number: CA-CONCORDIA PHARMACEUTICALS INC.-GSH201712-006585

PATIENT
  Age: 42 Year
  Sex: Female

DRUGS (16)
  1. CIMZIA [Suspect]
     Active Substance: CERTOLIZUMAB PEGOL
     Route: 065
     Dates: start: 20161110, end: 20171106
  2. XELJANZ [Concomitant]
     Active Substance: TOFACITINIB CITRATE
     Indication: RHEUMATOID ARTHRITIS
     Dates: start: 20171221
  3. GABAPENTIN. [Concomitant]
     Active Substance: GABAPENTIN
  4. DOMPERIDONE [Concomitant]
     Active Substance: DOMPERIDONE
  5. PLAQUENIL [Suspect]
     Active Substance: HYDROXYCHLOROQUINE SULFATE
     Indication: RHEUMATOID ARTHRITIS
     Route: 065
     Dates: start: 200701
  6. METHOTREXATE. [Suspect]
     Active Substance: METHOTREXATE
     Route: 065
     Dates: start: 200803, end: 200908
  7. NEXIUM [Concomitant]
     Active Substance: ESOMEPRAZOLE MAGNESIUM
  8. PREDNISONE. [Concomitant]
     Active Substance: PREDNISONE
     Dosage: PATIENT TAKES 15-20MG DAILY WHEN SHE WAS IN A FLARE
     Dates: start: 20171221
  9. PLAQUENIL [Suspect]
     Active Substance: HYDROXYCHLOROQUINE SULFATE
     Route: 048
     Dates: start: 20171221
  10. AZITHROMYCIN ANHYDROUS. [Concomitant]
     Active Substance: AZITHROMYCIN ANHYDROUS
     Dates: start: 20180705, end: 20181015
  11. TYLENOL [Concomitant]
     Active Substance: ACETAMINOPHEN
     Indication: COUGH
  12. METONIA [Concomitant]
     Active Substance: METOCLOPRAMIDE
  13. AMITRIPTYLINE [Concomitant]
     Active Substance: AMITRIPTYLINE
  14. METHOTREXATE. [Suspect]
     Active Substance: METHOTREXATE
     Indication: RHEUMATOID ARTHRITIS
     Route: 065
     Dates: start: 2002, end: 200701
  15. IMURAN [Suspect]
     Active Substance: AZATHIOPRINE
     Route: 065
     Dates: start: 200611, end: 200612
  16. RANITIDINE. [Concomitant]
     Active Substance: RANITIDINE

REACTIONS (15)
  - Inflammation [Unknown]
  - Memory impairment [Unknown]
  - Nasopharyngitis [Unknown]
  - Hand deformity [Unknown]
  - Movement disorder [Unknown]
  - Disability [Unknown]
  - Arthritis [Unknown]
  - Exposure during pregnancy [Unknown]
  - Musculoskeletal stiffness [Unknown]
  - Arthralgia [Unknown]
  - Depressed mood [Unknown]
  - Limb discomfort [Unknown]
  - Condition aggravated [Unknown]
  - Inappropriate schedule of product administration [Unknown]
  - Peripheral swelling [Unknown]

NARRATIVE: CASE EVENT DATE: 2016
